FAERS Safety Report 4611460-5 (Version None)
Quarter: 2005Q2

REPORT INFORMATION
  Report Type: 
  Country: None (occurrence: None)
  Receive Date: 20050311
  Receipt Date: 20041117
  Transmission Date: 20051028
  Serious: No
  Sender: FDA-Public Use
  Company Number: 2004-BP-11986BP

PATIENT
  Sex: Female

DRUGS (12)
  1. SPIRIVA [Suspect]
     Indication: CHRONIC OBSTRUCTIVE PULMONARY DISEASE
     Dosage: 18 MCG (18 MCG), IH
     Route: 055
  2. SPIRIVA [Suspect]
  3. ALBUTEROL [Concomitant]
  4. LEVOXYL (LEVOTHYROXINE SOIDUM) [Concomitant]
  5. ALLEGRA (FEXOFENADINE HDYROCHLORIDE) [Concomitant]
  6. LIPITOR [Concomitant]
  7. PREVACID [Concomitant]
  8. EVISTA [Concomitant]
  9. XALATAN [Concomitant]
  10. SEREVENT [Concomitant]
  11. NASACORT [Concomitant]
  12. ASTELEN [Concomitant]

REACTIONS (2)
  - AGEUSIA [None]
  - COUGH [None]
